FAERS Safety Report 15580780 (Version 1)
Quarter: 2018Q4

REPORT INFORMATION
  Report Type: Spontaneous
  Country: US (occurrence: US)
  Receive Date: 20181104
  Receipt Date: 20181104
  Transmission Date: 20190205
  Serious: No
  Sender: FDA-Public Use
  Company Number: None

PATIENT
  Sex: Male

DRUGS (1)
  1. VIVITROL [Suspect]
     Active Substance: NALTREXONE
     Indication: ALCOHOLISM
     Dosage: ?          OTHER FREQUENCY:EVERY 4 WEEKS;?
     Route: 030
     Dates: start: 20180910

REACTIONS (2)
  - Drug ineffective [None]
  - Pruritus [None]
